FAERS Safety Report 7294277-5 (Version None)
Quarter: 2011Q1

REPORT INFORMATION
  Report Type: 
  Country: None (occurrence: None)
  Receive Date: 20110215
  Receipt Date: 20110208
  Transmission Date: 20110831
  Serious: Yes (Other)
  Sender: FDA-Public Use
  Company Number: US-US-EMD SERONO, INC.-7000280

PATIENT
  Sex: Male
  Weight: 127 kg

DRUGS (3)
  1. UNSPECIFIED MEDICATIONS [Concomitant]
  2. REBIF [Suspect]
     Indication: MULTIPLE SCLEROSIS
     Route: 058
     Dates: start: 20091102, end: 20100402
  3. REBIF [Suspect]
     Route: 058
     Dates: start: 20100101

REACTIONS (2)
  - DIABETES MELLITUS [None]
  - HYPERHIDROSIS [None]
